FAERS Safety Report 9546939 (Version 1)
Quarter: 2013Q2

REPORT INFORMATION
  Report Type: Spontaneous
  Country: US (occurrence: None)
  Receive Date: 20130606
  Receipt Date: 20130606
  Transmission Date: 20140414
  Serious: No
  Sender: FDA-Public Use
  Company Number: 163-POMAL-13044314

PATIENT
  Age: 64 Year
  Sex: Male

DRUGS (5)
  1. POMALYST [Suspect]
     Indication: PLASMA CELL MYELOMA
     Route: 048
     Dates: start: 20130419
  2. ONDANSETRON [Concomitant]
  3. PROCHLORPERAZINE [Concomitant]
  4. LISINOPRIL [Concomitant]
  5. CHLOROTHALIDONE (UNSPECIFIED TRADITIONAL MEDICINE) [Concomitant]

REACTIONS (1)
  - Abdominal rigidity [None]
